FAERS Safety Report 22337072 (Version 1)
Quarter: 2023Q2

REPORT INFORMATION
  Report Type: Spontaneous
  Country: MX (occurrence: None)
  Receive Date: 20230518
  Receipt Date: 20230518
  Transmission Date: 20230722
  Serious: Yes (Other)
  Sender: FDA-Public Use
  Company Number: MX-ROCHE-3351224

PATIENT
  Sex: Female

DRUGS (1)
  1. OCREVUS [Suspect]
     Active Substance: OCRELIZUMAB
     Indication: Multiple sclerosis
     Dosage: FREQUENCY WAS NOT REPORTED
     Route: 042
     Dates: start: 202305

REACTIONS (2)
  - Pyramidal tract syndrome [Unknown]
  - Cerebellar syndrome [Unknown]
